FAERS Safety Report 18844190 (Version 7)
Quarter: 2021Q1

REPORT INFORMATION
  Report Type: Report from Study
  Country: None (occurrence: ES)
  Receive Date: 20210203
  Receipt Date: 20210225
  Transmission Date: 20210419
  Serious: Yes (Death, Hospitalization, Other)
  Sender: FDA-Public Use
  Company Number: ES-ABBVIE-21K-144-3757739-00

PATIENT
  Age: 77 Year
  Sex: Male
  Weight: 80 kg

DRUGS (2)
  1. DUODOPA [Suspect]
     Active Substance: CARBIDOPA\LEVODOPA
     Indication: PARKINSON^S DISEASE
     Route: 050
     Dates: start: 20191105, end: 20210215
  2. DUODOPA [Suspect]
     Active Substance: CARBIDOPA\LEVODOPA

REACTIONS (12)
  - Visual impairment [Not Recovered/Not Resolved]
  - Somnolence [Not Recovered/Not Resolved]
  - Head injury [Unknown]
  - Cerebral thrombosis [Not Recovered/Not Resolved]
  - Fall [Not Recovered/Not Resolved]
  - Nervousness [Recovered/Resolved]
  - Death [Fatal]
  - Blood pressure increased [Recovered/Resolved]
  - Haemorrhage intracranial [Not Recovered/Not Resolved]
  - Muscle rigidity [Not Recovered/Not Resolved]
  - Restlessness [Recovered/Resolved]
  - General physical health deterioration [Unknown]

NARRATIVE: CASE EVENT DATE: 20210201
